FAERS Safety Report 22819453 (Version 2)
Quarter: 2025Q3

REPORT INFORMATION
  Report Type: Spontaneous
  Country: JP (occurrence: JP)
  Receive Date: 20230814
  Receipt Date: 20250715
  Transmission Date: 20251021
  Serious: Yes (Other)
  Sender: ASTELLAS
  Company Number: JP-ASTELLAS-2023JP006594

PATIENT
  Age: 69 Year
  Sex: Male
  Weight: 47 kg

DRUGS (25)
  1. PADCEV [Suspect]
     Active Substance: ENFORTUMAB VEDOTIN-EJFV
     Indication: Transitional cell carcinoma
     Route: 042
     Dates: start: 20230207, end: 20230308
  2. PADCEV [Suspect]
     Active Substance: ENFORTUMAB VEDOTIN-EJFV
     Route: 042
     Dates: start: 20230315, end: 20230322
  3. PADCEV [Suspect]
     Active Substance: ENFORTUMAB VEDOTIN-EJFV
     Route: 042
     Dates: start: 20230405, end: 20230405
  4. PADCEV [Suspect]
     Active Substance: ENFORTUMAB VEDOTIN-EJFV
     Route: 042
     Dates: start: 20230426, end: 20230426
  5. PADCEV [Suspect]
     Active Substance: ENFORTUMAB VEDOTIN-EJFV
     Route: 042
     Dates: start: 20230510, end: 20230510
  6. PADCEV [Suspect]
     Active Substance: ENFORTUMAB VEDOTIN-EJFV
     Route: 042
     Dates: start: 20230524, end: 20230524
  7. PADCEV [Suspect]
     Active Substance: ENFORTUMAB VEDOTIN-EJFV
     Route: 042
     Dates: start: 20230607, end: 20230607
  8. PADCEV [Suspect]
     Active Substance: ENFORTUMAB VEDOTIN-EJFV
     Route: 042
     Dates: start: 20230705, end: 20230719
  9. FEXOFENADINE HYDROCHLORIDE [Concomitant]
     Active Substance: FEXOFENADINE HYDROCHLORIDE
     Indication: Dry skin
     Route: 065
  10. FEXOFENADINE HYDROCHLORIDE [Concomitant]
     Active Substance: FEXOFENADINE HYDROCHLORIDE
     Indication: Eczema asteatotic
     Route: 065
  11. PREGABALIN [Concomitant]
     Active Substance: PREGABALIN
     Indication: Product used for unknown indication
     Dosage: 75 MG, TWICE DAILY, AFTER BREAKFAST AND DINNER, 28 DAYS
     Route: 065
     Dates: start: 20230208
  12. PREGABALIN [Concomitant]
     Active Substance: PREGABALIN
     Dosage: 75 MG, TWICE DAILY, AFTER BREAKFAST AND DINNER, 28 DAYS
     Route: 065
     Dates: start: 20230510
  13. TRAMADOL HYDROCHLORIDE [Concomitant]
     Active Substance: TRAMADOL HYDROCHLORIDE
     Indication: Product used for unknown indication
     Dosage: 50 MG, THRICE DAILY, AFTER BREAKFAST, DINNER AND BEFORE BED, 28 DAYS
     Route: 065
     Dates: start: 20230208
  14. TRAMADOL HYDROCHLORIDE [Concomitant]
     Active Substance: TRAMADOL HYDROCHLORIDE
     Dosage: AFTER BREAKFAST: 100 MG, AFTER DINNER: 100 MG, BEFORE BED: 50 MG, THRICE DAILY, 28 DAYS
     Route: 065
     Dates: start: 20230510
  15. ACETAMINOPHEN [Concomitant]
     Active Substance: ACETAMINOPHEN
     Indication: Product used for unknown indication
     Dosage: 400 MG, THRICE DAILY, AFTER BREAKFAST, LUNCH AND DINNER, 20 DAYS
     Route: 065
     Dates: start: 20230208
  16. ACETAMINOPHEN [Concomitant]
     Active Substance: ACETAMINOPHEN
     Route: 048
  17. ACETAMINOPHEN [Concomitant]
     Active Substance: ACETAMINOPHEN
     Dosage: 400 MG, THRICE DAILY, AFTER BREAKFAST, LUNCH AND DINNER, 28 DAYS
     Route: 065
     Dates: start: 20230510
  18. LOXOPROFEN SODIUM [Concomitant]
     Active Substance: LOXOPROFEN SODIUM
     Indication: Product used for unknown indication
     Dosage: 100 MG, ONCE DAILY, WAIST, SHOULDERS, 1 DAY
     Route: 065
     Dates: start: 20230208
  19. LOXOPROFEN SODIUM [Concomitant]
     Active Substance: LOXOPROFEN SODIUM
     Dosage: 100 MG, ONCE DAILY, WAIST, SHOULDERS, 9 BAGS
     Route: 065
     Dates: start: 20230510
  20. ASPIRIN [Concomitant]
     Active Substance: ASPIRIN
     Indication: Product used for unknown indication
     Dosage: 100 MG, ONCE DAILY, AFTER BREAKFAST, 84 DAYS
     Route: 065
     Dates: start: 20230419
  21. VONOPRAZAN FUMARATE [Concomitant]
     Active Substance: VONOPRAZAN FUMARATE
     Indication: Product used for unknown indication
     Dosage: 10 MG, ONCE DAILY, AFTER BREAKFAST, 84 DAYS
     Route: 065
     Dates: start: 20230419
  22. ROSUVASTATIN [Concomitant]
     Active Substance: ROSUVASTATIN
     Indication: Product used for unknown indication
     Dosage: 5 MG, ONCE DAILY, AFTER BREAKFAST, 84 DAYS
     Route: 065
     Dates: start: 20230419
  23. AMLODIPINE [Concomitant]
     Active Substance: AMLODIPINE BESYLATE
     Indication: Product used for unknown indication
     Dosage: 5 MG, ONCE DAILY, AFTER BREAKFAST, 84 DAYS
     Route: 065
     Dates: start: 20230419
  24. AMLODIPINE [Concomitant]
     Active Substance: AMLODIPINE BESYLATE
     Indication: Product used for unknown indication
     Dosage: 2.5 MG, ONCE DAILY, AFTER BREAKFAST, 84 DAYS
     Route: 065
     Dates: start: 20230419
  25. ACETAMINOPHEN [Concomitant]
     Active Substance: ACETAMINOPHEN
     Indication: Product used for unknown indication
     Route: 042
     Dates: start: 20220420

REACTIONS (1)
  - Skin disorder [Recovering/Resolving]

NARRATIVE: CASE EVENT DATE: 20230531
